FAERS Safety Report 19271798 (Version 1)
Quarter: 2021Q2

REPORT INFORMATION
  Report Type: Spontaneous
  Country: CN (occurrence: CN)
  Receive Date: 20210519
  Receipt Date: 20210519
  Transmission Date: 20210717
  Serious: Yes (Other)
  Sender: FDA-Public Use
  Company Number: CN-LUPIN PHARMACEUTICALS INC.-2021-07066

PATIENT
  Age: 48 Year
  Sex: Male

DRUGS (6)
  1. VITAMIN K2 [Concomitant]
     Active Substance: MENAQUINONE 6
     Indication: ATYPICAL FEMUR FRACTURE
     Dosage: 15 MILLIGRAM, TID
     Route: 065
  2. CALCIUM [Concomitant]
     Active Substance: CALCIUM
     Indication: SUPPLEMENTATION THERAPY
     Dosage: UNK
     Route: 065
  3. VITAMIN D3 [Concomitant]
     Active Substance: CHOLECALCIFEROL
     Indication: PRODUCT USED FOR UNKNOWN INDICATION
     Dosage: UNK
     Route: 065
  4. HYDROCORTISONE. [Suspect]
     Active Substance: HYDROCORTISONE
     Dosage: 10 MILLIGRAM AT 6:00 PM
     Route: 065
  5. ALENDRONATE [Suspect]
     Active Substance: ALENDRONATE SODIUM
     Indication: OSTEOPOROSIS
     Dosage: 70 MILLIGRAM (PER WEEK)
     Route: 065
     Dates: start: 201709
  6. HYDROCORTISONE. [Suspect]
     Active Substance: HYDROCORTISONE
     Indication: PRIMARY HYPOGONADISM
     Dosage: 20 MILLIGRAM AT 7:00 AM
     Route: 065

REACTIONS (2)
  - Osteoporosis [Unknown]
  - Atypical femur fracture [Recovering/Resolving]
